FAERS Safety Report 7484813-8 (Version None)
Quarter: 2011Q2

REPORT INFORMATION
  Report Type: 
  Country: None (occurrence: None)
  Receive Date: 20110517
  Receipt Date: 20110508
  Transmission Date: 20111010
  Serious: Yes (Hospitalization)
  Sender: FDA-Public Use
  Company Number: PHHY2011IL38184

PATIENT
  Age: 79 Year
  Sex: Male

DRUGS (9)
  1. DISOTHIAZIDE [Concomitant]
     Route: 048
  2. ATENOLOL [Concomitant]
  3. RAMIPRIL [Concomitant]
  4. RASILEZ [Suspect]
     Indication: HYPERTENSION
     Dosage: 150 MG, UNK
     Route: 048
  5. ACETYL SALICYLIC ACID USP BAT [Concomitant]
     Route: 048
  6. LEVOTHYROXINE SODIUM [Concomitant]
     Route: 048
  7. ISOSORBIDE MONONITRATE [Concomitant]
     Route: 048
  8. AMLODIPINE BESYLATE [Concomitant]
     Dosage: UNK
  9. DOXAZOSIN MESYLATE [Concomitant]
     Route: 048

REACTIONS (1)
  - ATRIAL FIBRILLATION [None]
